FAERS Safety Report 12709908 (Version 1)
Quarter: 2016Q3

REPORT INFORMATION
  Report Type: Spontaneous
  Country: US (occurrence: None)
  Receive Date: 20160901
  Receipt Date: 20160901
  Transmission Date: 20161109
  Serious: No
  Sender: FDA-Public Use
  Company Number: None

PATIENT
  Age: 26 Year
  Sex: Female

DRUGS (1)
  1. XOLAIR [Suspect]
     Active Substance: OMALIZUMAB
     Indication: IDIOPATHIC URTICARIA
     Dosage: XOLAIR 300MG SUBCUTANEOUSLY Q4WKS
     Route: 058
     Dates: start: 201508, end: 201608

REACTIONS (1)
  - Therapy cessation [None]

NARRATIVE: CASE EVENT DATE: 201608
